FAERS Safety Report 4993666-9 (Version None)
Quarter: 2006Q2

REPORT INFORMATION
  Report Type: 
  Country: None (occurrence: None)
  Receive Date: 20060505
  Receipt Date: 20060117
  Transmission Date: 20061013
  Serious: Yes (Other)
  Sender: FDA-Public Use
  Company Number: US-MERCK-0601USA02178

PATIENT
  Age: 63 Year
  Sex: Female
  Weight: 96 kg

DRUGS (1)
  1. VIOXX [Suspect]
     Route: 048
     Dates: start: 19990101, end: 20040901

REACTIONS (1)
  - CEREBROVASCULAR ACCIDENT [None]
